FAERS Safety Report 4861792-0 (Version None)
Quarter: 2005Q4

REPORT INFORMATION
  Report Type: 
  Country: None (occurrence: None)
  Receive Date: 20051220
  Receipt Date: 20050928
  Transmission Date: 20060501
  Serious: Yes (Hospitalization, Disabling)
  Sender: FDA-Public Use
  Company Number: CA-MERCK-0509CAN00197

PATIENT
  Age: 60 Year
  Sex: Male
  Weight: 77 kg

DRUGS (5)
  1. VIOXX [Suspect]
     Indication: BACK PAIN
     Route: 048
     Dates: start: 20000217, end: 20040701
  2. LORAZEPAM [Concomitant]
     Indication: ANXIETY
     Route: 065
  3. PENTAZOCINE LACTATE [Concomitant]
     Indication: ARTHRITIS
     Route: 065
     Dates: start: 20030701
  4. CELECOXIB [Concomitant]
     Route: 065
     Dates: start: 20000101, end: 20000201
  5. CELECOXIB [Concomitant]
     Route: 065
     Dates: start: 20000201, end: 20000601

REACTIONS (3)
  - ANXIETY [None]
  - MYOCARDIAL INFARCTION [None]
  - TRANSIENT ISCHAEMIC ATTACK [None]
